FAERS Safety Report 21817331 (Version 1)
Quarter: 2023Q1

REPORT INFORMATION
  Report Type: Spontaneous
  Country: US (occurrence: None)
  Receive Date: 20230104
  Receipt Date: 20230104
  Transmission Date: 20230417
  Serious: No
  Sender: FDA-Public Use
  Company Number: None

PATIENT
  Age: 45 Year
  Sex: Female
  Weight: 131.54 kg

DRUGS (13)
  1. IBRANCE [Suspect]
     Active Substance: PALBOCICLIB
     Indication: Breast cancer female
     Dosage: 100MG DAILY ORAL
     Route: 048
     Dates: end: 20221230
  2. ALBUTEROL [Concomitant]
     Active Substance: ALBUTEROL
  3. CEFDINIR [Concomitant]
     Active Substance: CEFDINIR
  4. IBUPROFEN [Concomitant]
     Active Substance: IBUPROFEN
  5. LETROZOLE [Concomitant]
     Active Substance: LETROZOLE
  6. levefloxaxin [Concomitant]
  7. MAGNESIUM OXIDE [Concomitant]
     Active Substance: MAGNESIUM OXIDE
  8. MUCINEX [Concomitant]
     Active Substance: GUAIFENESIN
  9. OMEPRAZOLE [Concomitant]
     Active Substance: OMEPRAZOLE
  10. ACETAMINOPHEN\OXYCODONE HYDROCHLORIDE [Concomitant]
     Active Substance: ACETAMINOPHEN\OXYCODONE HYDROCHLORIDE
  11. PREDNISONE [Concomitant]
     Active Substance: PREDNISONE
  12. VITAMIN C [Concomitant]
     Active Substance: ASCORBIC ACID
  13. VITAMIN D [Concomitant]
     Active Substance: VITAMIN D NOS

REACTIONS (1)
  - White blood cell count decreased [None]
